FAERS Safety Report 24708033 (Version 1)
Quarter: 2024Q4

REPORT INFORMATION
  Report Type: Spontaneous
  Country: CN (occurrence: CN)
  Receive Date: 20241206
  Receipt Date: 20241206
  Transmission Date: 20250115
  Serious: Yes (Other)
  Sender: ANI
  Company Number: CN-ANIPHARMA-2024-CN-000467

PATIENT
  Sex: Male

DRUGS (2)
  1. CASODEX [Suspect]
     Active Substance: BICALUTAMIDE
     Indication: Prostate cancer
     Dosage: QD
  2. GOSERELIN [Suspect]
     Active Substance: GOSERELIN
     Indication: Prostate cancer
     Dosage: Q4W
     Route: 058

REACTIONS (5)
  - Urinary tract obstruction [Unknown]
  - Dermatitis allergic [Unknown]
  - Sexual dysfunction [Unknown]
  - Nausea [Unknown]
  - Vomiting [Unknown]
